FAERS Safety Report 14380536 (Version 1)
Quarter: 2018Q1

REPORT INFORMATION
  Report Type: Spontaneous
  Country: AR (occurrence: AR)
  Receive Date: 20180112
  Receipt Date: 20180112
  Transmission Date: 20180509
  Serious: Yes (Other)
  Sender: FDA-Public Use
  Company Number: AR-PFIZER INC-2018013637

PATIENT
  Age: 63 Year
  Sex: Female

DRUGS (1)
  1. IBRANCE [Suspect]
     Active Substance: PALBOCICLIB
     Indication: BREAST CANCER METASTATIC
     Dosage: 125 MG, CYCLIC (DAILY, 3/1 SCHEME)
     Dates: start: 20171106

REACTIONS (8)
  - Tinnitus [Not Recovered/Not Resolved]
  - Gait disturbance [Recovering/Resolving]
  - Pleural effusion [Recovering/Resolving]
  - Gait inability [Recovering/Resolving]
  - Dyspnoea [Recovering/Resolving]
  - Deafness [Not Recovered/Not Resolved]
  - Hypoacusis [Not Recovered/Not Resolved]
  - Hypersensitivity [Not Recovered/Not Resolved]

NARRATIVE: CASE EVENT DATE: 201801
